FAERS Safety Report 16049370 (Version 6)
Quarter: 2019Q3

REPORT INFORMATION
  Report Type: Spontaneous
  Country: US (occurrence: US)
  Receive Date: 20190307
  Receipt Date: 20190723
  Transmission Date: 20191004
  Serious: No
  Sender: FDA-Public Use
  Company Number: US-PFIZER INC-2019087390

PATIENT
  Age: 40 Year
  Sex: Male

DRUGS (1)
  1. TESTOSTERONE CIPIONATE [Suspect]
     Active Substance: TESTOSTERONE
     Dosage: 0.63 ML, 2X/WEEK
     Route: 030

REACTIONS (3)
  - Poor quality product administered [Unknown]
  - Product physical issue [Unknown]
  - Drug ineffective [Unknown]
